FAERS Safety Report 8444073-8 (Version None)
Quarter: 2012Q2

REPORT INFORMATION
  Report Type: 
  Country: None (occurrence: None)
  Receive Date: 20120618
  Receipt Date: 20120613
  Transmission Date: 20120825
  Serious: Yes (Hospitalization, Other)
  Sender: FDA-Public Use
  Company Number: PHHY2011CA24210

PATIENT
  Sex: Male

DRUGS (5)
  1. SANDOSTATIN LAR [Suspect]
     Dosage: 30 MG EVERY 4 WEEKS
     Route: 030
     Dates: start: 20110906
  2. DIAMICRON [Concomitant]
  3. SANDOSTATIN LAR [Suspect]
     Indication: THYROID CANCER
     Dosage: 30 MG, EVERY 4 WEEKS
     Route: 030
     Dates: start: 20110224
  4. DILTIAZEM [Concomitant]
  5. RADIATION [Concomitant]

REACTIONS (25)
  - HYPOGLYCAEMIA [None]
  - ANGER [None]
  - DIZZINESS [None]
  - ASTHENIA [None]
  - NEOPLASM PROGRESSION [None]
  - FEELING ABNORMAL [None]
  - DECREASED APPETITE [None]
  - HYPOPHAGIA [None]
  - ATRIAL FIBRILLATION [None]
  - METASTASES TO SPINE [None]
  - DYSSTASIA [None]
  - FACE OEDEMA [None]
  - INJECTION SITE PAIN [None]
  - HYPERGLYCAEMIA [None]
  - DEPRESSED MOOD [None]
  - NAUSEA [None]
  - BLOOD PRESSURE DECREASED [None]
  - NEOPLASM MALIGNANT [None]
  - WEIGHT DECREASED [None]
  - MALNUTRITION [None]
  - VOMITING [None]
  - HEART RATE INCREASED [None]
  - BLOOD PRESSURE SYSTOLIC INCREASED [None]
  - MALAISE [None]
  - HEART RATE IRREGULAR [None]
